FAERS Safety Report 6482653-X (Version None)
Quarter: 2009Q4

REPORT INFORMATION
  Report Type: 
  Country: None (occurrence: None)
  Receive Date: 20091209
  Receipt Date: 20091202
  Transmission Date: 20100525
  Serious: Yes (Hospitalization)
  Sender: FDA-Public Use
  Company Number: US-BIOGENIDEC-2009BI037492

PATIENT
  Age: 59 Year
  Sex: Female

DRUGS (2)
  1. AVONEX [Suspect]
     Indication: MULTIPLE SCLEROSIS
     Route: 030
  2. AVONEX [Suspect]
     Route: 030
     Dates: start: 20090901

REACTIONS (6)
  - FALL [None]
  - HAEMORRHAGE [None]
  - HYPOTENSION [None]
  - ILIUM FRACTURE [None]
  - RIB FRACTURE [None]
  - UPPER LIMB FRACTURE [None]
